FAERS Safety Report 7419370-5 (Version None)
Quarter: 2011Q2

REPORT INFORMATION
  Report Type: 
  Country: None (occurrence: None)
  Receive Date: 20110415
  Receipt Date: 20110414
  Transmission Date: 20111010
  Serious: Yes (Other)
  Sender: FDA-Public Use
  Company Number: DE-ABBOTT-10P-062-0671350-00

PATIENT
  Sex: Male
  Weight: 90 kg

DRUGS (4)
  1. HUMIRA [Suspect]
     Indication: RHEUMATOID ARTHRITIS
     Dates: start: 20100525
  2. DECORTIN [Concomitant]
     Indication: RHEUMATOID ARTHRITIS
     Dosage: 5 MG PER DAY
     Dates: start: 20041201
  3. GLUKOCORTICOIDS [Concomitant]
     Indication: RHEUMATOID ARTHRITIS
     Dosage: INCREASED TO 5 MG ON 10 JUNE 2010 (ONCE PER DAY)
  4. METHOTREXATE [Concomitant]
     Indication: RHEUMATOID ARTHRITIS
     Dosage: 15 MG PER WEEK
     Dates: start: 20041201

REACTIONS (1)
  - TENDON RUPTURE [None]
